FAERS Safety Report 8321501-X (Version None)
Quarter: 2012Q2

REPORT INFORMATION
  Report Type: 
  Country: None (occurrence: None)
  Receive Date: 20120430
  Receipt Date: 20120430
  Transmission Date: 20120825
  Serious: Yes (Death)
  Sender: FDA-Public Use
  Company Number: None

PATIENT
  Age: 89 Year
  Sex: Male
  Weight: 65.77 kg

DRUGS (1)
  1. KETOROLAC TROMETHAMINE [Suspect]
     Indication: HIP FRACTURE
     Dosage: 30MG
     Route: 042
     Dates: start: 20120327, end: 20120328

REACTIONS (2)
  - BLOOD CREATININE INCREASED [None]
  - CARDIAC ARREST [None]
